FAERS Safety Report 17315468 (Version 1)
Quarter: 2020Q1

REPORT INFORMATION
  Report Type: Spontaneous
  Country: US (occurrence: US)
  Receive Date: 20200108
  Receipt Date: 20200108
  Transmission Date: 20200409
  Serious: No
  Sender: FDA-Public Use
  Company Number: None

PATIENT

DRUGS (1)
  1. HYDROXYPROG 250MG/ML (5ML) MDV [Suspect]
     Active Substance: HYDROXYPROGESTERONE
     Route: 030
     Dates: start: 201912

REACTIONS (1)
  - Pain [None]

NARRATIVE: CASE EVENT DATE: 20200108
